FAERS Safety Report 25381804 (Version 1)
Quarter: 2025Q2

REPORT INFORMATION
  Report Type: Other
  Country: ES (occurrence: ES)
  Receive Date: 20250531
  Receipt Date: 20250531
  Transmission Date: 20250716
  Serious: Yes (Other)
  Sender: ZYDUS PHARM
  Company Number: None

PATIENT

DRUGS (1)
  1. OMEPRAZOLE [Suspect]
     Active Substance: OMEPRAZOLE
     Indication: Product used for unknown indication
     Route: 048
     Dates: start: 20050510

REACTIONS (3)
  - Respiratory distress [Unknown]
  - Face oedema [Unknown]
  - Tachycardia [Unknown]

NARRATIVE: CASE EVENT DATE: 20250510
